FAERS Safety Report 15464429 (Version 5)
Quarter: 2018Q4

REPORT INFORMATION
  Report Type: Spontaneous
  Country: JP (occurrence: JP)
  Receive Date: 20181004
  Receipt Date: 20181030
  Transmission Date: 20190204
  Serious: Yes (Life-Threatening, Other)
  Sender: FDA-Public Use
  Company Number: JP-PFIZER INC-2018397661

PATIENT
  Age: 84 Year
  Sex: Male
  Weight: 56.8 kg

DRUGS (11)
  1. LAFUTIDINE [Concomitant]
     Active Substance: LAFUTIDINE
     Indication: SUDDEN HEARING LOSS
     Dosage: 10 MG, 2X/DAY
     Route: 048
  2. MECOBALAMIN [Concomitant]
     Active Substance: METHYLCOBALAMIN
  3. OXALIPLATIN 100MG/20ML HOSPIRA [Suspect]
     Active Substance: OXALIPLATIN
     Dosage: 100 MG, 1X/DAY
     Route: 042
     Dates: start: 20180928, end: 20180928
  4. NICERGOLINE [Concomitant]
     Active Substance: NICERGOLINE
     Indication: SUDDEN HEARING LOSS
     Dosage: 5 MG, 3X/DAY
     Route: 048
  5. BUFFERIN A [ACETYLSALICYLIC ACID;ALUMINIUM GLYCINATE;MAGNESIUM CARBONA [Concomitant]
     Indication: SUDDEN HEARING LOSS
     Dosage: 81 MG, 1X/DAY
     Route: 048
  6. ATP [ADENOSINE TRIPHOSPHATE, DISODIUM SALT] [Concomitant]
     Indication: SUDDEN HEARING LOSS
     Dosage: 20 MG, 3X/DAY
     Route: 048
  7. FURSULTIAMINA [Concomitant]
     Indication: SUDDEN HEARING LOSS
     Dosage: 25 MG, 3X/DAY
     Route: 048
  8. ASPARA-CA [Concomitant]
     Active Substance: CALCIUM ASPARTATE
     Indication: SUDDEN HEARING LOSS
     Dosage: 200 MG, 1X/DAY
     Route: 048
  9. RIZE [Concomitant]
     Active Substance: CLOTIAZEPAM
  10. OXALIPLATIN 100MG/20ML HOSPIRA [Suspect]
     Active Substance: OXALIPLATIN
     Indication: COLON CANCER
     Dosage: 100 MG, 1X/DAY
     Dates: start: 20170626, end: 20170903
  11. XELODA [Concomitant]
     Active Substance: CAPECITABINE
     Indication: COLON CANCER
     Dosage: 600 MG, 3X/DAY
     Route: 048
     Dates: start: 20180928

REACTIONS (5)
  - Respiratory depression [Recovered/Resolved]
  - Bradycardia [Recovered/Resolved]
  - Loss of consciousness [Recovered/Resolved]
  - Orthostatic hypotension [Unknown]
  - Oxygen saturation decreased [Recovered/Resolved]

NARRATIVE: CASE EVENT DATE: 20180928
